FAERS Safety Report 11226946 (Version 2)
Quarter: 2015Q4

REPORT INFORMATION
  Report Type: Report from Study
  Country: DE (occurrence: DE)
  Receive Date: 20150630
  Receipt Date: 20151005
  Transmission Date: 20160304
  Serious: Yes (Hospitalization, Other)
  Sender: FDA-Public Use
  Company Number: DE-ABBVIE-15K-062-1415873-00

PATIENT
  Age: 78 Year
  Sex: Female
  Weight: 65 kg

DRUGS (1)
  1. HUMIRA [Suspect]
     Active Substance: ADALIMUMAB
     Indication: RHEUMATOID ARTHRITIS
     Route: 058
     Dates: start: 20110728, end: 201411

REACTIONS (8)
  - Aortic valve stenosis [Recovering/Resolving]
  - Postoperative wound infection [Unknown]
  - Osteomyelitis [Recovering/Resolving]
  - Coronary artery disease [Recovering/Resolving]
  - Blood alkaline phosphatase increased [Unknown]
  - Brain natriuretic peptide increased [Unknown]
  - Gamma-glutamyltransferase increased [Unknown]
  - Blood lactate dehydrogenase increased [Unknown]

NARRATIVE: CASE EVENT DATE: 2014
